FAERS Safety Report 7556809-9 (Version None)
Quarter: 2011Q2

REPORT INFORMATION
  Report Type: 
  Country: None (occurrence: None)
  Receive Date: 20110620
  Receipt Date: 20110613
  Transmission Date: 20111010
  Serious: Yes (Hospitalization)
  Sender: FDA-Public Use
  Company Number: IE-US-EMD SERONO, INC.-7064937

PATIENT
  Sex: Male

DRUGS (1)
  1. REBIF [Suspect]
     Indication: MULTIPLE SCLEROSIS
     Dates: start: 20061023

REACTIONS (6)
  - FATIGUE [None]
  - CANDIDIASIS [None]
  - COORDINATION ABNORMAL [None]
  - SCIATICA [None]
  - MUSCLE SPASMS [None]
  - MOBILITY DECREASED [None]
